FAERS Safety Report 6412958-X (Version None)
Quarter: 2009Q4

REPORT INFORMATION
  Report Type: 
  Country: None (occurrence: None)
  Receive Date: 20091023
  Receipt Date: 20091009
  Transmission Date: 20100525
  Serious: Yes (Congenital Anomaly)
  Sender: FDA-Public Use
  Company Number: DK-WATSON-2009-08588

PATIENT

DRUGS (1)
  1. FLUOXETINE HCL [Suspect]
     Indication: MATERNAL DRUGS AFFECTING FOETUS
     Dosage: UNK
     Route: 015

REACTIONS (1)
  - CONGENITAL CARDIOVASCULAR ANOMALY [None]
